FAERS Safety Report 8239855-1 (Version None)
Quarter: 2012Q1

REPORT INFORMATION
  Report Type: 
  Country: None (occurrence: None)
  Receive Date: 20120328
  Receipt Date: 20120319
  Transmission Date: 20120608
  Serious: Yes (Other)
  Sender: FDA-Public Use
  Company Number: PHFR2012GB001679

PATIENT
  Sex: Female

DRUGS (2)
  1. CLOZARIL [Suspect]
     Indication: SCHIZOPHRENIA
     Route: 048
     Dates: start: 20100811
  2. CLOZARIL [Suspect]
     Dosage: UNK
     Route: 048

REACTIONS (2)
  - BUNDLE BRANCH BLOCK RIGHT [None]
  - TACHYCARDIA [None]
